FAERS Safety Report 7012151-6 (Version None)
Quarter: 2010Q3

REPORT INFORMATION
  Report Type: 
  Country: None (occurrence: None)
  Receive Date: 20100924
  Receipt Date: 20100920
  Transmission Date: 20110219
  Serious: Yes (Hospitalization)
  Sender: FDA-Public Use
  Company Number: US-CEPHALON-2010005016

PATIENT
  Sex: Male
  Weight: 93 kg

DRUGS (2)
  1. PROVIGIL [Suspect]
     Indication: NARCOLEPSY
     Route: 048
     Dates: start: 20010101, end: 20010101
  2. GHB [Concomitant]
     Dates: start: 20010101

REACTIONS (7)
  - ABNORMAL BEHAVIOUR [None]
  - FEELING ABNORMAL [None]
  - HALLUCINATION [None]
  - LETHARGY [None]
  - PARANOIA [None]
  - SCHIZOPHRENIA [None]
  - SLEEP PARALYSIS [None]
